FAERS Safety Report 10651829 (Version 1)
Quarter: 2014Q4

REPORT INFORMATION
  Report Type: Spontaneous
  Country: US (occurrence: None)
  Receive Date: 20141205
  Receipt Date: 20141205
  Transmission Date: 20150529
  Serious: No
  Sender: FDA-Public Use
  Company Number: 2014TUS007191

PATIENT
  Age: 49 Year
  Sex: Female
  Weight: 106.1 kg

DRUGS (1)
  1. OSENI [Suspect]
     Active Substance: ALOGLIPTIN BENZOATE\PIOGLITAZONE HYDROCHLORIDE
     Indication: TYPE 2 DIABETES MELLITUS
     Route: 048
     Dates: start: 20140721, end: 20140805

REACTIONS (2)
  - Weight increased [None]
  - Headache [None]

NARRATIVE: CASE EVENT DATE: 20140723
